FAERS Safety Report 5747054-8 (Version None)
Quarter: 2008Q2

REPORT INFORMATION
  Report Type: 
  Country: None (occurrence: None)
  Receive Date: 20080522
  Receipt Date: 20080519
  Transmission Date: 20081010
  Serious: Yes (Life-Threatening, Hospitalization)
  Sender: FDA-Public Use
  Company Number: JP-BOEHRINGER INGELHEIM GMBH, GERMANY-2008-BP-07795RO

PATIENT
  Age: 35 Year
  Sex: Female

DRUGS (7)
  1. CYCLOPHOSPHAMIDE [Suspect]
     Indication: BONE MARROW CONDITIONING REGIMEN
  2. METHOTREXATE [Suspect]
     Indication: PROPHYLAXIS AGAINST GRAFT VERSUS HOST DISEASE
  3. CYCLOSPORINE [Suspect]
     Indication: PROPHYLAXIS AGAINST GRAFT VERSUS HOST DISEASE
  4. PREDNISOLONE [Concomitant]
     Indication: AUTOIMMUNE HEPATITIS
     Route: 042
  5. PREDNISOLONE [Concomitant]
     Indication: PROPHYLAXIS AGAINST GRAFT VERSUS HOST DISEASE
  6. GANCICLOVIR [Concomitant]
     Indication: ADENOVIRUS INFECTION
  7. ANTI-ADV HIGH-TITER IMMUNOGLOBULIN [Concomitant]
     Indication: ADENOVIRUS INFECTION

REACTIONS (6)
  - ADENOVIRUS INFECTION [None]
  - CARDIAC FAILURE [None]
  - ENTEROCOLITIS HAEMORRHAGIC [None]
  - HEPATITIS [None]
  - RENAL FAILURE [None]
  - RESPIRATORY FAILURE [None]
